FAERS Safety Report 8617434-1 (Version None)
Quarter: 2012Q3

REPORT INFORMATION
  Report Type: 
  Country: None (occurrence: None)
  Receive Date: 20120824
  Receipt Date: 20111111
  Transmission Date: 20120928
  Serious: No
  Sender: FDA-Public Use
  Company Number: US-ASTRAZENECA-2011SE68954

PATIENT
  Sex: Female

DRUGS (3)
  1. SYMBICORT [Suspect]
     Route: 055
  2. PENICILLIN SHOTS [Concomitant]
  3. CEPHALEXIN [Concomitant]

REACTIONS (4)
  - SKIN REACTION [None]
  - DYSPNOEA [None]
  - PRODUCTIVE COUGH [None]
  - DRUG INEFFECTIVE [None]
